FAERS Safety Report 5317148-X (Version None)
Quarter: 2007Q2

REPORT INFORMATION
  Report Type: 
  Country: None (occurrence: None)
  Receive Date: 20070504
  Receipt Date: 20070426
  Transmission Date: 20071010
  Serious: Yes (Other)
  Sender: FDA-Public Use
  Company Number: FRWYE540526APR07

PATIENT
  Age: 40 Year
  Sex: Female

DRUGS (2)
  1. EFFEXOR XR [Suspect]
     Route: 048
     Dates: start: 20070227, end: 20070327
  2. MORPHINE [Concomitant]
     Dosage: UNKNOWN

REACTIONS (1)
  - CYTOLYTIC HEPATITIS [None]
